FAERS Safety Report 7061681-X (Version None)
Quarter: 2010Q4

REPORT INFORMATION
  Report Type: 
  Country: None (occurrence: None)
  Receive Date: 20101026
  Receipt Date: 20101014
  Transmission Date: 20110411
  Serious: Yes (Hospitalization)
  Sender: FDA-Public Use
  Company Number: JP-ROCHE-647030

PATIENT
  Sex: Female
  Weight: 45 kg

DRUGS (28)
  1. TOCILIZUMAB [Suspect]
     Indication: RHEUMATOID ARTHRITIS
     Route: 041
     Dates: start: 20090427, end: 20090427
  2. TOCILIZUMAB [Suspect]
     Route: 041
     Dates: start: 20090527, end: 20090527
  3. TOCILIZUMAB [Suspect]
     Route: 041
     Dates: start: 20090624, end: 20090624
  4. TOCILIZUMAB [Suspect]
     Route: 041
     Dates: start: 20090729, end: 20090729
  5. TOCILIZUMAB [Suspect]
     Route: 041
     Dates: start: 20091028, end: 20100519
  6. BLINDED OCRELIZUMAB [Suspect]
     Indication: RHEUMATOID ARTHRITIS
     Dosage: LAST DOSE PRIOR TO SAE: 23 FEB 09
     Route: 042
     Dates: start: 20080827
  7. PREDNISOLONE [Suspect]
     Indication: RHEUMATOID ARTHRITIS
     Route: 048
     Dates: start: 20040603, end: 20081118
  8. PREDNISOLONE [Suspect]
     Dosage: OTHER INDICATION: ORGANISING PNEUMONIA
     Route: 048
     Dates: start: 20081127, end: 20081209
  9. PREDNISOLONE [Suspect]
     Route: 048
     Dates: start: 20081210, end: 20081216
  10. PREDNISOLONE [Suspect]
     Route: 048
     Dates: start: 20081217, end: 20081223
  11. PREDNISOLONE [Suspect]
     Route: 048
     Dates: start: 20081224, end: 20090106
  12. PREDNISOLONE [Suspect]
     Route: 048
     Dates: start: 20090107, end: 20090113
  13. PREDNISOLONE [Suspect]
     Route: 048
     Dates: start: 20090114, end: 20090120
  14. PREDNISOLONE [Suspect]
     Route: 048
     Dates: start: 20090121, end: 20090426
  15. PREDNISOLONE [Suspect]
     Route: 048
     Dates: start: 20090427, end: 20090526
  16. PREDNISOLONE [Suspect]
     Route: 048
     Dates: start: 20090527, end: 20090609
  17. METHOTREXATE [Concomitant]
     Indication: RHEUMATOID ARTHRITIS
     Dates: start: 20080513, end: 20081118
  18. METHOTREXATE [Concomitant]
     Dates: start: 20090223
  19. FOLIC ACID [Concomitant]
     Dates: start: 20080730, end: 20081118
  20. FOLIC ACID [Concomitant]
     Dates: start: 20090223
  21. TACROLIMUS [Concomitant]
     Indication: RHEUMATOID ARTHRITIS
     Dates: start: 20070627, end: 20081125
  22. TACROLIMUS [Concomitant]
     Dates: start: 20090211
  23. DICLOFENAC SODIUM [Concomitant]
     Indication: RHEUMATOID ARTHRITIS
     Dates: start: 20050811
  24. TEPRENONE [Concomitant]
     Indication: GASTRITIS PROPHYLAXIS
     Dates: start: 20070501
  25. ALENDRONATE SODIUM [Concomitant]
     Indication: OSTEOPOROSIS
     Dates: start: 20071225
  26. SERRAPEPTASE [Concomitant]
     Dosage: AS NEEDED
     Dates: start: 20080610
  27. AMBROXOL HYDROCHLORIDE [Concomitant]
     Dosage: AS NEEDED
     Dates: start: 20080610
  28. ETANERCEPT [Concomitant]
     Indication: RHEUMATOID ARTHRITIS
     Dates: start: 20050922, end: 20080630

REACTIONS (1)
  - OSTEONECROSIS [None]
